FAERS Safety Report 4651985-X (Version None)
Quarter: 2005Q2

REPORT INFORMATION
  Report Type: 
  Country: None (occurrence: None)
  Receive Date: 20050502
  Receipt Date: 20050502
  Transmission Date: 20051028
  Serious: No
  Sender: FDA-Public Use
  Company Number: None

PATIENT
  Sex: Female

DRUGS (1)
  1. TEQUIN [Suspect]
     Dosage: 200MG QD

REACTIONS (1)
  - HYPERSENSITIVITY [None]
